FAERS Safety Report 16569289 (Version 4)
Quarter: 2022Q2

REPORT INFORMATION
  Report Type: Spontaneous
  Country: US (occurrence: None)
  Receive Date: 20190715
  Receipt Date: 20220418
  Transmission Date: 20220721
  Serious: Yes (Death, Hospitalization, Other)
  Sender: FDA-Public Use
  Company Number: 2019SE10908

PATIENT
  Age: 22197 Day
  Sex: Female
  Weight: 81.6 kg

DRUGS (71)
  1. NEXIUM [Suspect]
     Active Substance: ESOMEPRAZOLE MAGNESIUM
     Indication: Gastrooesophageal reflux disease
     Dosage: 20 MG, TIMES TAKEN DAILY IS TO BE SUPPLEMENTED AT A LATER DATE.
     Route: 048
     Dates: start: 2010, end: 2016
  2. NEXIUM [Suspect]
     Active Substance: ESOMEPRAZOLE MAGNESIUM
     Indication: Gastrooesophageal reflux disease
     Dosage: 20 MG, TIMES TAKEN DAILY IS TO BE SUPPLEMENTED AT A LATER DATE.
     Route: 048
     Dates: start: 2010, end: 2016
  3. NEXIUM [Suspect]
     Active Substance: ESOMEPRAZOLE MAGNESIUM
     Indication: Gastrooesophageal reflux disease
     Dosage: FOR VARIOUS DATES AND YEARS
     Route: 048
  4. NEXIUM [Suspect]
     Active Substance: ESOMEPRAZOLE MAGNESIUM
     Indication: Gastrooesophageal reflux disease
     Dosage: FOR VARIOUS DATES AND YEARS
     Route: 048
  5. PRILOSEC [Suspect]
     Active Substance: OMEPRAZOLE MAGNESIUM
     Indication: Gastrooesophageal reflux disease
     Dosage: 20 MG, TIMES TAKEN DAILY IS TO BE SUPPLEMENTED AT A LATER DATE.
     Route: 048
     Dates: start: 2012, end: 2016
  6. PRILOSEC [Suspect]
     Active Substance: OMEPRAZOLE MAGNESIUM
     Indication: Gastrooesophageal reflux disease
     Dosage: 20 MG, TIMES TAKEN DAILY IS TO BE SUPPLEMENTED AT A LATER DATE.
     Route: 048
     Dates: start: 2012, end: 2016
  7. PRILOSEC OTC [Suspect]
     Active Substance: OMEPRAZOLE MAGNESIUM
     Indication: Gastrooesophageal reflux disease
     Route: 048
     Dates: start: 2012, end: 2016
  8. PRILOSEC OTC [Suspect]
     Active Substance: OMEPRAZOLE MAGNESIUM
     Indication: Gastrooesophageal reflux disease
     Route: 048
     Dates: start: 2012, end: 2016
  9. PREVACID [Suspect]
     Active Substance: LANSOPRAZOLE
     Indication: Gastrooesophageal reflux disease
     Dosage: 20 MG, TIMES TAKEN DAILY IS TO BE SUPPLEMENTED AT A LATER DATE.
     Route: 065
     Dates: start: 2010, end: 2016
  10. PREVACID [Suspect]
     Active Substance: LANSOPRAZOLE
     Indication: Gastrooesophageal reflux disease
     Dosage: 20 MG, TIMES TAKEN DAILY IS TO BE SUPPLEMENTED AT A LATER DATE.
     Route: 065
     Dates: start: 2010, end: 2016
  11. PREVACID 24 HR [Suspect]
     Active Substance: LANSOPRAZOLE
     Indication: Gastrooesophageal reflux disease
     Route: 065
     Dates: start: 2010, end: 2016
  12. PREVACID 24 HR [Suspect]
     Active Substance: LANSOPRAZOLE
     Indication: Gastrooesophageal reflux disease
     Route: 065
     Dates: start: 2010, end: 2016
  13. PROTONIX [Suspect]
     Active Substance: PANTOPRAZOLE SODIUM
     Indication: Gastrooesophageal reflux disease
     Dosage: 20 MG, TIMES TAKEN DAILY IS TO BE SUPPLEMENTED AT A LATER DATE.
     Route: 065
     Dates: start: 2012, end: 2016
  14. PROTONIX [Suspect]
     Active Substance: PANTOPRAZOLE SODIUM
     Indication: Gastrooesophageal reflux disease
     Dosage: 20 MG, TIMES TAKEN DAILY IS TO BE SUPPLEMENTED AT A LATER DATE.
     Route: 065
     Dates: start: 2012, end: 2016
  15. ACETAMINOPHEN\OXYCODONE HYDROCHLORIDE [Concomitant]
     Active Substance: ACETAMINOPHEN\OXYCODONE HYDROCHLORIDE
     Indication: Pain
  16. LOPERAMIDE [Concomitant]
     Active Substance: LOPERAMIDE
     Indication: Diarrhoea
  17. METRONIDAZOLE [Concomitant]
     Active Substance: METRONIDAZOLE
     Indication: Eye infection chlamydial
  18. FLUCONAZOLE [Concomitant]
     Active Substance: FLUCONAZOLE
     Indication: Infection
  19. GLIPIZIDE [Concomitant]
     Active Substance: GLIPIZIDE
     Indication: Diabetes mellitus
  20. METOPROLOL [Concomitant]
     Active Substance: METOPROLOL
     Indication: Hypertension
  21. MEGESTROL [Concomitant]
     Active Substance: MEGESTROL
     Indication: Weight decreased
  22. AZOR [Concomitant]
     Active Substance: AMLODIPINE BESYLATE\OLMESARTAN MEDOXOMIL
     Indication: Hypertension
  23. LACTULOSE [Concomitant]
     Active Substance: LACTULOSE
     Indication: Constipation
  24. ASCORBIC ACID\BIOTIN\CALCIUM PANTOTHENATE\CYANOCOBALAMIN\FOLIC ACID\NI [Concomitant]
     Active Substance: ASCORBIC ACID\BIOTIN\CALCIUM PANTOTHENATE\CYANOCOBALAMIN\FOLIC ACID\NIACINAMIDE\PYRIDOXINE HYDROCHLO
     Indication: Hypovitaminosis
  25. DILTIAZEM [Concomitant]
     Active Substance: DILTIAZEM
     Indication: Hypertension
  26. SUCRALFATE [Concomitant]
     Active Substance: SUCRALFATE
     Indication: Ulcer
  27. ONDANSETRON [Concomitant]
     Active Substance: ONDANSETRON
     Indication: Nausea
  28. PROMETHAZINE [Concomitant]
     Active Substance: PROMETHAZINE HYDROCHLORIDE
     Indication: Antiallergic therapy
  29. LOVASTATIN [Concomitant]
     Active Substance: LOVASTATIN
     Indication: Blood cholesterol increased
  30. METFORMIN [Concomitant]
     Active Substance: METFORMIN HYDROCHLORIDE
     Indication: Diabetes mellitus
  31. FERROUS SULFATE [Concomitant]
     Active Substance: FERROUS SULFATE
     Indication: Mineral supplementation
  32. PHENAZOPYRID [Concomitant]
     Indication: Urinary tract infection
  33. CIPROFLOXACIN [Concomitant]
     Active Substance: CIPROFLOXACIN
     Indication: Infection
  34. TOVIAZ [Concomitant]
     Active Substance: FESOTERODINE FUMARATE
     Indication: Bladder pain
  35. ASPIRIN [Concomitant]
     Active Substance: ASPIRIN
  36. FAMOTIDINE [Concomitant]
     Active Substance: FAMOTIDINE
  37. RANITIDINE [Concomitant]
     Active Substance: RANITIDINE
  38. SODIUM CHLORIDE [Concomitant]
     Active Substance: SODIUM CHLORIDE
  39. ACETAMINOPHEN [Concomitant]
     Active Substance: ACETAMINOPHEN
  40. BENADRYL [Concomitant]
     Active Substance: DIPHENHYDRAMINE HYDROCHLORIDE
  41. LASIX [Concomitant]
     Active Substance: FUROSEMIDE
  42. ATORVASTATIN [Concomitant]
     Active Substance: ATORVASTATIN
  43. ZESTRIL [Concomitant]
     Active Substance: LISINOPRIL
  44. PREMARIN [Concomitant]
     Active Substance: ESTROGENS, CONJUGATED
  45. OXYCODONE [Concomitant]
     Active Substance: OXYCODONE
  46. HYDROCHLOROTHIAZIDE [Concomitant]
     Active Substance: HYDROCHLOROTHIAZIDE
  47. CODEINE [Concomitant]
     Active Substance: CODEINE
  48. INSULIN NOS [Concomitant]
     Active Substance: INSULIN NOS
  49. NORMASOL [Concomitant]
  50. LIDOCAINE [Concomitant]
     Active Substance: LIDOCAINE
  51. ANCEF [Concomitant]
     Active Substance: CEFAZOLIN SODIUM
  52. FENTANYL [Concomitant]
     Active Substance: FENTANYL
  53. DEXTROSE [Concomitant]
     Active Substance: DEXTROSE
  54. VERSED [Concomitant]
     Active Substance: MIDAZOLAM HYDROCHLORIDE
  55. DILAUDID [Concomitant]
     Active Substance: HYDROMORPHONE HYDROCHLORIDE
  56. MORPHINE [Concomitant]
     Active Substance: MORPHINE
  57. DEMEROL [Concomitant]
     Active Substance: MEPERIDINE HYDROCHLORIDE
  58. NARCAN [Concomitant]
     Active Substance: NALOXONE HYDROCHLORIDE
  59. VALIUM [Concomitant]
     Active Substance: DIAZEPAM
  60. LABETALOL [Concomitant]
     Active Substance: LABETALOL\LABETALOL HYDROCHLORIDE
  61. HYDRALAZINE [Concomitant]
     Active Substance: HYDRALAZINE HYDROCHLORIDE
  62. SODIUM BICARBONATE [Concomitant]
     Active Substance: SODIUM BICARBONATE
  63. PERCOCET [Concomitant]
     Active Substance: ACETAMINOPHEN\OXYCODONE HYDROCHLORIDE
  64. PROPOFOL [Concomitant]
     Active Substance: PROPOFOL
  65. ESMOLOL [Concomitant]
     Active Substance: ESMOLOL HYDROCHLORIDE
  66. NIACIN [Concomitant]
     Active Substance: NIACIN
  67. COLACE [Concomitant]
     Active Substance: DOCUSATE SODIUM
  68. VANCOMYCIN [Concomitant]
     Active Substance: VANCOMYCIN
  69. AMLODIPINE [Concomitant]
     Active Substance: AMLODIPINE BESYLATE
  70. DOXYCYCLINE HYCLATE [Concomitant]
     Active Substance: DOXYCYCLINE HYCLATE
  71. HEPARIN [Concomitant]
     Active Substance: HEPARIN SODIUM

REACTIONS (9)
  - End stage renal disease [Fatal]
  - Acute kidney injury [Unknown]
  - Chronic kidney disease [Unknown]
  - Renal failure [Not Recovered/Not Resolved]
  - Renal injury [Unknown]
  - Metabolic acidosis [Unknown]
  - Renal tubular necrosis [Unknown]
  - Tubulointerstitial nephritis [Unknown]
  - Rebound acid hypersecretion [Unknown]

NARRATIVE: CASE EVENT DATE: 20150626
